FAERS Safety Report 15042052 (Version 2)
Quarter: 2019Q3

REPORT INFORMATION
  Report Type: Spontaneous
  Country: US (occurrence: US)
  Receive Date: 20180621
  Receipt Date: 20190913
  Transmission Date: 20191004
  Serious: No
  Sender: FDA-Public Use
  Company Number: US-PFIZER INC-2018247326

PATIENT
  Age: 9 Year
  Sex: Female
  Weight: 28.12 kg

DRUGS (2)
  1. GENOTROPIN [Suspect]
     Active Substance: SOMATROPIN
     Dosage: 1.1 MG, ONCE A DAY BEFORE BED
     Dates: start: 20180104
  2. GENOTROPIN [Suspect]
     Active Substance: SOMATROPIN
     Indication: BLOOD GROWTH HORMONE
     Dosage: 1 MG, 1X/DAY (QD AT BEDTIME)

REACTIONS (3)
  - Product dose omission [Unknown]
  - Sinusitis [Unknown]
  - Device issue [Unknown]
